FAERS Safety Report 9948636 (Version 1)
Quarter: 2014Q1

REPORT INFORMATION
  Report Type: Spontaneous
  Country: US (occurrence: None)
  Receive Date: 20140122
  Receipt Date: 20140122
  Transmission Date: 20141002
  Serious: Yes (Other)
  Sender: FDA-Public Use
  Company Number: AEGR000208

PATIENT
  Age: 54 Year
  Sex: Male
  Weight: 69.4 kg

DRUGS (8)
  1. JUXTAPID [Suspect]
     Indication: TYPE IIA HYPERLIPIDAEMIA
     Route: 048
     Dates: start: 20130911, end: 2013
  2. WELCHOL (COLESEVELEM HYDROCHLORIDE) [Concomitant]
  3. LOVAZA (OMEGA-3-ACID ETHYL ESTER) [Concomitant]
  4. TEKTURNA (ALISKIREN FUMARATE) [Concomitant]
  5. PRAVASTATIN (PRAVASTATIN SODIUM) [Concomitant]
  6. LEXAPRO (ESCITALOPRAM OXALATE) [Concomitant]
  7. TRAJENTA (LINAGLIPTIN) [Concomitant]
  8. VITAMIN D (COLECALCIFEROL) [Concomitant]

REACTIONS (2)
  - Hepatic enzyme increased [None]
  - Arthralgia [None]
